FAERS Safety Report 16115450 (Version 1)
Quarter: 2019Q1

REPORT INFORMATION
  Report Type: Spontaneous
  Country: FR (occurrence: FR)
  Receive Date: 20190325
  Receipt Date: 20190325
  Transmission Date: 20190418
  Serious: Yes (Other)
  Sender: FDA-Public Use
  Company Number: PHHY2019FR061446

PATIENT
  Age: 53 Year
  Sex: Female

DRUGS (2)
  1. VALSARTAN. [Suspect]
     Active Substance: VALSARTAN
     Indication: HYPERTENSION
     Dosage: UNK
     Route: 048
  2. TROLOVOL [Suspect]
     Active Substance: PENICILLAMINE
     Indication: CYSTINURIA
     Dosage: 300 MG, UNK
     Route: 048
     Dates: start: 201804, end: 201810

REACTIONS (2)
  - Glomerulonephropathy [Recovering/Resolving]
  - Proteinuria [Recovering/Resolving]

NARRATIVE: CASE EVENT DATE: 201810
